FAERS Safety Report 8042230-6 (Version None)
Quarter: 2012Q1

REPORT INFORMATION
  Report Type: 
  Country: None (occurrence: None)
  Receive Date: 20120112
  Receipt Date: 20120109
  Transmission Date: 20120608
  Serious: Yes (Hospitalization, Other)
  Sender: FDA-Public Use
  Company Number: ES-B.I. PHARMACEUTICALS,INC./RIDGEFIELD-2011-EU-00933GD

PATIENT
  Sex: Female

DRUGS (3)
  1. PRAMIPEXOLE DIHYCHLLORIDE [Suspect]
     Indication: PARKINSON'S DISEASE
     Dosage: 2.1 MG
  2. CARBIDOPA + LEVODOPA [Suspect]
     Indication: PARKINSON'S DISEASE
     Dosage: LEVODOPA/CARBIDOPA 600/60 MG
  3. CARBIDOPA + LEVODOPA [Suspect]
     Dosage: SIX MONTHS AFTER DDS BEGAN TO TAKE MORE DOSES OF LEVODOPA THAN PRESCRIBED

REACTIONS (3)
  - INTENTIONAL DRUG MISUSE [None]
  - CHOREA [None]
  - DOPAMINE DYSREGULATION SYNDROME [None]
